FAERS Safety Report 15103031 (Version 1)
Quarter: 2018Q3

REPORT INFORMATION
  Report Type: Spontaneous
  Country: US (occurrence: US)
  Receive Date: 20180703
  Receipt Date: 20180703
  Transmission Date: 20181010
  Serious: Yes (Other)
  Sender: FDA-Public Use
  Company Number: US-UPSHER-SMITH LABORATORIES, LLC-2018USL00273

PATIENT
  Age: 66 Year
  Sex: Female

DRUGS (1)
  1. AMANTADINE HYDROCHLORIDE. [Suspect]
     Active Substance: AMANTADINE HYDROCHLORIDE
     Indication: CRANIOCEREBRAL INJURY
     Dosage: UNK, 2X/DAY
     Route: 065

REACTIONS (2)
  - Blindness unilateral [Recovering/Resolving]
  - Corneal oedema [Recovering/Resolving]
